FAERS Safety Report 10626974 (Version 2)
Quarter: 2014Q4

REPORT INFORMATION
  Report Type: Report from Study
  Country: US (occurrence: US)
  Receive Date: 20141204
  Receipt Date: 20141204
  Transmission Date: 20150529
  Serious: Yes (Death)
  Sender: FDA-Public Use
  Company Number: US-PFIZER INC-2014325010

PATIENT
  Age: 59 Year
  Sex: Female

DRUGS (7)
  1. GUAIFENESIN. [Suspect]
     Active Substance: GUAIFENESIN
     Indication: COUGH
     Dosage: UNK
  2. GUAIFENESIN. [Suspect]
     Active Substance: GUAIFENESIN
     Indication: PULMONARY CONGESTION
  3. ONDANSETRON [Suspect]
     Active Substance: ONDANSETRON
     Dosage: PRESCRIPTION WAS MISSING 9 PILLS IN 2 DAYS SINCE IT WAS PRESCRIBED (1 PILL THREE TIMES PER DAY)
  4. OXYCODONE [Suspect]
     Active Substance: OXYCODONE
     Indication: NECK PAIN
     Dosage: PRESCRIPTIONS WAS MISSING 88 PILLS IN 20 DAYS SINCE IT WAS PRESCRIBED (1 PILL 4 TIMES PER DAY)
  5. GUAIFENESIN. [Suspect]
     Active Substance: GUAIFENESIN
     Indication: NAUSEA
  6. OXYCODONE [Suspect]
     Active Substance: OXYCODONE
     Indication: ARTHRALGIA
  7. CARISOPRODOL. [Suspect]
     Active Substance: CARISOPRODOL
     Dosage: PRESCRIPTION WAS MISSING 28 PILLS IN 6 DAYS SINCE IT WAS PRESCRIBED (PRESCRIBED AS 1 PILL THREE TIME

REACTIONS (2)
  - Accidental overdose [Fatal]
  - Toxicity to various agents [Fatal]
